FAERS Safety Report 8235792-7 (Version None)
Quarter: 2012Q1

REPORT INFORMATION
  Report Type: 
  Country: None (occurrence: None)
  Receive Date: 20120326
  Receipt Date: 20120320
  Transmission Date: 20120608
  Serious: Yes (Other)
  Sender: FDA-Public Use
  Company Number: US-PFIZER INC-2012072846

PATIENT
  Age: 90 Year
  Sex: Male

DRUGS (2)
  1. LATANOPROST [Suspect]
     Dosage: 1 GTT, 1X/DAY
     Dates: start: 20110101
  2. ALPHAGAN [Concomitant]
     Indication: OPEN ANGLE GLAUCOMA
     Dosage: UNKN, 2X/DAY

REACTIONS (2)
  - EYE MOVEMENT DISORDER [None]
  - ASTHENOPIA [None]
